FAERS Safety Report 9641793 (Version 1)
Quarter: 2013Q4

REPORT INFORMATION
  Report Type: Spontaneous
  Country: US (occurrence: US)
  Receive Date: 20131023
  Receipt Date: 20131023
  Transmission Date: 20140711
  Serious: No
  Sender: FDA-Public Use
  Company Number: US-BAYER-2013-128250

PATIENT
  Age: 74 Year
  Sex: Female
  Weight: 66.67 kg

DRUGS (2)
  1. ALEVE TABLET [Suspect]
     Indication: ANALGESIC THERAPY
     Dosage: 2 DF, PRN
     Route: 048
     Dates: start: 1994
  2. ALEVE TABLET [Suspect]
     Indication: PAIN
     Dosage: 1 DF, PRN
     Route: 048
     Dates: start: 1994

REACTIONS (3)
  - Glossodynia [Recovered/Resolved]
  - Throat irritation [Recovered/Resolved]
  - Oesophageal pain [Recovered/Resolved]
